FAERS Safety Report 6236652-3 (Version None)
Quarter: 2009Q2

REPORT INFORMATION
  Report Type: 
  Country: None (occurrence: None)
  Receive Date: 20090619
  Receipt Date: 20081125
  Transmission Date: 20091009
  Serious: No
  Sender: FDA-Public Use
  Company Number: US-ASTRAZENECA-2008UW26432

PATIENT
  Sex: Male
  Weight: 80.3 kg

DRUGS (11)
  1. ATACAND [Suspect]
     Route: 048
  2. LEXAPRO [Concomitant]
  3. KLOZAPIN [Concomitant]
  4. ASPIRIN [Concomitant]
  5. RIARDA [Concomitant]
  6. LASIZ [Concomitant]
  7. SPIRALACTONE [Concomitant]
  8. PREDNISONE [Concomitant]
  9. SIMVASTATIN [Concomitant]
  10. CARVADILO [Concomitant]
  11. AMNIPRODONE [Concomitant]

REACTIONS (3)
  - DEPRESSION [None]
  - FEELING OF DESPAIR [None]
  - SURGERY [None]
